FAERS Safety Report 26005397 (Version 1)
Quarter: 2025Q4

REPORT INFORMATION
  Report Type: Spontaneous
  Country: US (occurrence: US)
  Receive Date: 20251106
  Receipt Date: 20251106
  Transmission Date: 20260118
  Serious: Yes (Hospitalization)
  Sender: BIOGEN
  Company Number: US-BIOGEN-2089094

PATIENT
  Age: 41 Year

DRUGS (1)
  1. SKYCLARYS [Suspect]
     Active Substance: OMAVELOXOLONE
     Indication: Product used for unknown indication

REACTIONS (5)
  - Hypotension [Unknown]
  - Heart rate increased [Unknown]
  - Pyrexia [Unknown]
  - Visual impairment [Unknown]
  - Dizziness [Unknown]
